FAERS Safety Report 4326067-7 (Version None)
Quarter: 2004Q1

REPORT INFORMATION
  Report Type: 
  Country: None (occurrence: None)
  Receive Date: 20040323
  Receipt Date: 20040316
  Transmission Date: 20041129
  Serious: Yes (Hospitalization, Other)
  Sender: FDA-Public Use
  Company Number: USA-2003-0006213

PATIENT
  Age: 64 Year
  Sex: Male

DRUGS (16)
  1. OXYCONTIN [Suspect]
     Indication: PAIN
     Dosage: 10 MG, Q12H PRN, ORAL; SEE IMAGE
     Route: 048
  2. LASIX [Concomitant]
  3. TIAZAC [Concomitant]
  4. ATIVAN [Concomitant]
  5. ORUVAIL [Concomitant]
  6. PRAVACHOL (PRAVASTATIN SODUIM) [Concomitant]
  7. PRILOSEC [Concomitant]
  8. EFFEXOR [Concomitant]
  9. ASPIRIN [Concomitant]
  10. KCL (POTASSIUM CHLORIDE) [Concomitant]
  11. ISMO [Concomitant]
  12. NITROGLYCERIN [Concomitant]
  13. CARDIZEM CD [Concomitant]
  14. ACEON [Concomitant]
  15. ATENOLOL [Concomitant]
  16. VENTOLIN [Concomitant]

REACTIONS (24)
  - AKINESIA [None]
  - ANXIETY [None]
  - AORTIC VALVE INCOMPETENCE [None]
  - ASTHENIA [None]
  - CARDIAC DISORDER [None]
  - CARDIAC FAILURE CONGESTIVE [None]
  - CHEST PAIN [None]
  - CORONARY ARTERY DISEASE [None]
  - DEPRESSION [None]
  - DIABETES MELLITUS [None]
  - DRUG DEPENDENCE [None]
  - DRUG WITHDRAWAL SYNDROME [None]
  - DYSPNOEA [None]
  - EJECTION FRACTION DECREASED [None]
  - HEADACHE [None]
  - HYPERTENSION [None]
  - HYPOXIA [None]
  - INSOMNIA [None]
  - MYOCARDIAL INFARCTION [None]
  - NAUSEA [None]
  - OEDEMA [None]
  - PAIN [None]
  - SCOLIOSIS [None]
  - SPINAL OSTEOARTHRITIS [None]
